FAERS Safety Report 18508884 (Version 1)
Quarter: 2020Q4

REPORT INFORMATION
  Report Type: Spontaneous
  Country: US (occurrence: US)
  Receive Date: 20201117
  Receipt Date: 20201117
  Transmission Date: 20210114
  Serious: No
  Sender: FDA-Public Use
  Company Number: US-TARO-2020TAR01375

PATIENT

DRUGS (2)
  1. TRETINOIN. [Suspect]
     Active Substance: TRETINOIN
     Dosage: QD, LESS THAN PEA SIZE, ONCE A DAY IN EVENINGS, TOPICALLY TO FACE
     Route: 061
     Dates: start: 20200817
  2. TRETINOIN. [Suspect]
     Active Substance: TRETINOIN
     Indication: DRUG THERAPY
     Dosage: QD, LESS THAN PEA SIZE, ONCE A DAY IN EVENINGS, TOPICALLY TO FACE
     Route: 061
     Dates: start: 202008, end: 20200809

REACTIONS (4)
  - Skin exfoliation [Not Recovered/Not Resolved]
  - Off label use [Unknown]
  - Erythema [Recovered/Resolved]
  - Paraesthesia [Recovered/Resolved]

NARRATIVE: CASE EVENT DATE: 202008
